FAERS Safety Report 22110093 (Version 1)
Quarter: 2023Q1

REPORT INFORMATION
  Report Type: Other
  Country: CN (occurrence: None)
  Receive Date: 20230317
  Receipt Date: 20230317
  Transmission Date: 20230417
  Serious: Yes (Other)
  Sender: FDA-Public Use
  Company Number: CN-ROCHE-3308407

PATIENT
  Age: 63 Year
  Sex: Male
  Weight: 68 kg

DRUGS (7)
  1. PACLITAXEL [Suspect]
     Active Substance: PACLITAXEL
     Indication: Neoplasm
     Route: 065
     Dates: start: 20210727, end: 20211022
  2. CARBOPLATIN [Suspect]
     Active Substance: CARBOPLATIN
     Indication: Neoplasm
     Route: 065
     Dates: start: 20210727, end: 20220929
  3. GEMCITABINE [Suspect]
     Active Substance: GEMCITABINE
     Indication: Neoplasm
     Route: 065
     Dates: start: 20220602, end: 20220623
  4. PEMETREXED [Suspect]
     Active Substance: PEMETREXED
     Indication: Neoplasm
     Route: 065
     Dates: start: 20220718
  5. BEVACIZUMAB [Suspect]
     Active Substance: BEVACIZUMAB
     Indication: Neoplasm
     Route: 065
     Dates: start: 20220718
  6. PEMBROLIZUMAB [Suspect]
     Active Substance: PEMBROLIZUMAB
     Indication: Neoplasm
     Route: 065
     Dates: start: 20210727, end: 20220927
  7. CATEQUENTINIB [Concomitant]
     Active Substance: CATEQUENTINIB

REACTIONS (7)
  - Hyperthyroidism [Not Recovered/Not Resolved]
  - Anaemia [Not Recovered/Not Resolved]
  - Bilirubin conjugated increased [Recovered/Resolved]
  - Hypokalaemia [Not Recovered/Not Resolved]
  - Blood glucose increased [Not Recovered/Not Resolved]
  - Hypoalbuminaemia [Not Recovered/Not Resolved]
  - Aspartate aminotransferase increased [Not Recovered/Not Resolved]

NARRATIVE: CASE EVENT DATE: 20211112
